FAERS Safety Report 6554431-4 (Version None)
Quarter: 2010Q1

REPORT INFORMATION
  Report Type: 
  Country: None (occurrence: None)
  Receive Date: 20100127
  Receipt Date: 20100125
  Transmission Date: 20100710
  Serious: Yes (Hospitalization)
  Sender: FDA-Public Use
  Company Number: GXKR2009DE08047

PATIENT
  Age: 43 Year
  Sex: Male
  Weight: 94 kg

DRUGS (5)
  1. PREDNISOLONE [Suspect]
     Indication: COLITIS ULCERATIVE
     Dosage: 5 MG, QD
     Route: 048
     Dates: start: 20050101
  2. PREDNISOLONE [Suspect]
     Dosage: 50/0/30 MG
     Route: 048
     Dates: start: 20021101
  3. BUDENOFALK [Suspect]
     Indication: COLITIS ULCERATIVE
     Dosage: 3 MG, BID
     Route: 048
     Dates: start: 20050101
  4. PROGRAF [Suspect]
     Indication: COLITIS ULCERATIVE
     Dosage: 3 MG, BID
     Route: 048
     Dates: start: 20021101
  5. PANTOPRAZOLE [Concomitant]
     Indication: PROPHYLAXIS AGAINST GASTROINTESTINAL ULCER
     Dosage: 20 MG, QD
     Route: 048
     Dates: start: 20021101

REACTIONS (1)
  - PORTAL VEIN THROMBOSIS [None]
